FAERS Safety Report 5984025-0 (Version None)
Quarter: 2008Q4

REPORT INFORMATION
  Report Type: 
  Country: None (occurrence: None)
  Receive Date: 20081205
  Receipt Date: 20081205
  Transmission Date: 20090506
  Serious: Yes (Other)
  Sender: FDA-Public Use
  Company Number: None

PATIENT
  Age: 62 Year
  Sex: Female
  Weight: 57.6068 kg

DRUGS (2)
  1. ACTONEL [Suspect]
     Indication: OSTEOPOROSIS
     Dosage: 35MG ONCE A WEEK
     Dates: start: 20081027
  2. ACTONEL [Suspect]
     Indication: OSTEOPOROSIS
     Dosage: 35MG ONCE A WEEK
     Dates: start: 20081103

REACTIONS (6)
  - ASTHENIA [None]
  - DYSKINESIA [None]
  - MYALGIA [None]
  - PAIN IN EXTREMITY [None]
  - UVEITIS [None]
  - VISION BLURRED [None]
